FAERS Safety Report 8186405-4 (Version None)
Quarter: 2012Q1

REPORT INFORMATION
  Report Type: 
  Country: None (occurrence: None)
  Receive Date: 20120306
  Receipt Date: 20120227
  Transmission Date: 20120608
  Serious: Yes (Hospitalization, Other)
  Sender: FDA-Public Use
  Company Number: US-BAYER-201039597NA

PATIENT
  Age: 19 Year
  Sex: Female
  Weight: 68.027 kg

DRUGS (1)
  1. YAZ [Suspect]
     Indication: CONTRACEPTION
     Dosage: UNK
     Dates: start: 20030301, end: 20030501

REACTIONS (3)
  - DEEP VEIN THROMBOSIS [None]
  - LIMB INJURY [None]
  - PULMONARY EMBOLISM [None]
